FAERS Safety Report 7085405-5 (Version None)
Quarter: 2010Q4

REPORT INFORMATION
  Report Type: 
  Country: None (occurrence: None)
  Receive Date: 20101005
  Receipt Date: 20090924
  Transmission Date: 20110411
  Serious: Yes (Other)
  Sender: FDA-Public Use
  Company Number: US-WYE-H11199409

PATIENT

DRUGS (1)
  1. RAPAMUNE [Suspect]
     Dosage: DOSE AND FREQUENCY NOT SPECIFIED

REACTIONS (1)
  - ORGANISING PNEUMONIA [None]
